FAERS Safety Report 23596879 (Version 4)
Quarter: 2025Q1

REPORT INFORMATION
  Report Type: Spontaneous
  Country: DE (occurrence: DE)
  Receive Date: 20240305
  Receipt Date: 20250109
  Transmission Date: 20250409
  Serious: Yes (Hospitalization, Other)
  Sender: SANDOZ
  Company Number: DE-AMGEN-DEUSP2024022402

PATIENT
  Age: 71 Year
  Sex: Female

DRUGS (3)
  1. ADALIMUMAB [Suspect]
     Active Substance: ADALIMUMAB
     Indication: Psoriasis
     Route: 065
  2. ADALIMUMAB [Suspect]
     Active Substance: ADALIMUMAB
     Indication: Arthralgia
  3. METHOTREXATE [Concomitant]
     Active Substance: METHOTREXATE
     Indication: Psoriasis
     Dosage: 15 MG, QW
     Route: 058

REACTIONS (5)
  - Arthritis viral [Recovered/Resolved]
  - Arthralgia [Recovered/Resolved]
  - Hepatitis C [Recovered/Resolved]
  - Hepatitis C [Unknown]
  - Drug ineffective [Unknown]
